FAERS Safety Report 23941461 (Version 2)
Quarter: 2024Q2

REPORT INFORMATION
  Report Type: Report from Study
  Country: US (occurrence: US)
  Receive Date: 20240605
  Receipt Date: 20240607
  Transmission Date: 20240716
  Serious: No
  Sender: FDA-Public Use
  Company Number: US-PFIZER INC-202400185659

PATIENT
  Age: 74 Year
  Sex: Male

DRUGS (1)
  1. BRAFTOVI [Suspect]
     Active Substance: ENCORAFENIB
     Dosage: 300 MG, 1X/DAY (BY MOUTH ONCE DAILY)
     Route: 048
     Dates: start: 20240514

REACTIONS (2)
  - Dysuria [Recovered/Resolved]
  - Fatigue [Unknown]
